FAERS Safety Report 14171841 (Version 2)
Quarter: 2018Q2

REPORT INFORMATION
  Report Type: Spontaneous
  Country: US (occurrence: US)
  Receive Date: 20171108
  Receipt Date: 20180515
  Transmission Date: 20180711
  Serious: No
  Sender: FDA-Public Use
  Company Number: US-SA-2017SA130429

PATIENT
  Sex: Female

DRUGS (4)
  1. SOLOSTAR [Concomitant]
     Active Substance: DEVICE
  2. TOUJEO [Suspect]
     Active Substance: INSULIN GLARGINE
     Dosage: DOSE:40 UNIT(S)
     Route: 051
  3. TOUJEO [Suspect]
     Active Substance: INSULIN GLARGINE
     Dosage: DOSE:40 UNIT(S)
     Route: 051
  4. SOLOSTAR [Concomitant]
     Active Substance: DEVICE

REACTIONS (2)
  - Memory impairment [Unknown]
  - Drug dose omission [Unknown]
